FAERS Safety Report 7399924-5 (Version None)
Quarter: 2011Q2

REPORT INFORMATION
  Report Type: 
  Country: None (occurrence: None)
  Receive Date: 20110407
  Receipt Date: 20110324
  Transmission Date: 20111010
  Serious: Yes (Hospitalization)
  Sender: FDA-Public Use
  Company Number: US-JNJFOC-20090908610

PATIENT
  Age: 56 Year
  Sex: Female
  Weight: 65.77 kg

DRUGS (3)
  1. DOXORUBICIN HCL [Suspect]
     Indication: BREAST CANCER METASTATIC
     Dosage: 8 CYCLES, EVERY 3 WEEKS UNTIL DISEASE PROGRESSION
     Route: 042
     Dates: start: 20090312, end: 20090924
  2. BEVACIZUMAB [Suspect]
     Indication: BREAST CANCER METASTATIC
     Dosage: 15 MG/M2 EVERY 3 WEEKS UNTILL DISEAE PROGRESSION
     Route: 065
     Dates: start: 20090312, end: 20090910
  3. CARBOPLATIN [Suspect]
     Indication: BREAST CANCER METASTATIC
     Dosage: 8 CYCLES, EVERY 3 WEEKS UNTIL DISEASE PROGRESSION
     Route: 065
     Dates: start: 20090312, end: 20090924

REACTIONS (3)
  - THROMBOCYTOPENIA [None]
  - HYPERTENSION [None]
  - CARDIAC FAILURE CONGESTIVE [None]
